FAERS Safety Report 8295346-3 (Version None)
Quarter: 2012Q2

REPORT INFORMATION
  Report Type: 
  Country: None (occurrence: None)
  Receive Date: 20120418
  Receipt Date: 20120210
  Transmission Date: 20120825
  Serious: Yes (Hospitalization)
  Sender: FDA-Public Use
  Company Number: DE-BAXTER-2012BH004646

PATIENT
  Age: 60 Year
  Sex: Female
  Weight: 92.7 kg

DRUGS (7)
  1. NUTRINEAL [Suspect]
     Route: 033
  2. NUTRINEAL [Suspect]
     Route: 033
     Dates: start: 20101101
  3. PHYSIOSOL IN PLASTIC CONTAINER [Suspect]
     Route: 033
     Dates: start: 20080430
  4. NUTRINEAL [Suspect]
     Route: 033
     Dates: start: 20101101
  5. NUTRINEAL [Suspect]
     Route: 033
     Dates: start: 20101203
  6. EXTRANEAL [Suspect]
     Route: 033
     Dates: start: 20080430
  7. NUTRINEAL [Suspect]
     Route: 033
     Dates: start: 20080430, end: 20101101

REACTIONS (1)
  - NONINFECTIOUS PERITONITIS [None]
